FAERS Safety Report 17276888 (Version 3)
Quarter: 2020Q1

REPORT INFORMATION
  Report Type: Spontaneous
  Country: US (occurrence: US)
  Receive Date: 20200116
  Receipt Date: 20200207
  Transmission Date: 20200409
  Serious: No
  Sender: FDA-Public Use
  Company Number: US-PFIZER INC-2020019649

PATIENT
  Age: 32 Year
  Sex: Male
  Weight: 88 kg

DRUGS (3)
  1. SOMAVERT [Suspect]
     Active Substance: PEGVISOMANT
     Indication: CLUSTER HEADACHE
  2. SOMAVERT [Suspect]
     Active Substance: PEGVISOMANT
     Indication: MALIGNANT PITUITARY TUMOUR
     Dosage: 20 MG, 1X/DAY(, ONCE A DAY FOR 21 DAYS )
     Dates: start: 20191123, end: 20200113
  3. SOMAVERT [Suspect]
     Active Substance: PEGVISOMANT
     Indication: MIGRAINE

REACTIONS (4)
  - Off label use [Unknown]
  - Hypersensitivity [Unknown]
  - Abdominal pain [Recovering/Resolving]
  - Drug ineffective for unapproved indication [Unknown]

NARRATIVE: CASE EVENT DATE: 20200111
